FAERS Safety Report 6573521-3 (Version None)
Quarter: 2010Q1

REPORT INFORMATION
  Report Type: 
  Country: None (occurrence: None)
  Receive Date: 20100208
  Receipt Date: 20100202
  Transmission Date: 20100710
  Serious: Yes (Death, Other)
  Sender: FDA-Public Use
  Company Number: ES-CELGENEUS-144-50794-09100537

PATIENT
  Sex: Female

DRUGS (4)
  1. VIDAZA [Suspect]
     Route: 058
     Dates: start: 20080101
  2. VIDAZA [Suspect]
  3. RED BLOOD CELLS [Concomitant]
     Indication: DRUG USE FOR UNKNOWN INDICATION
     Route: 051
  4. EPOGEN [Concomitant]
     Indication: DRUG USE FOR UNKNOWN INDICATION
     Route: 065

REACTIONS (3)
  - DISEASE PROGRESSION [None]
  - HYPERSENSITIVITY [None]
  - TRANSFUSION REACTION [None]
